FAERS Safety Report 4844694-5 (Version None)
Quarter: 2005Q4

REPORT INFORMATION
  Report Type: 
  Country: None (occurrence: None)
  Receive Date: 20051201
  Receipt Date: 20051201
  Transmission Date: 20060501
  Serious: Yes (Life-Threatening, Hospitalization)
  Sender: FDA-Public Use
  Company Number: None

PATIENT
  Age: 58 Year
  Sex: Male
  Weight: 120 kg

DRUGS (2)
  1. LOVENOX [Suspect]
     Indication: ATRIAL FIBRILLATION
     Dosage: 110 MG Q12H SQ
     Route: 058
     Dates: start: 20050429, end: 20050502
  2. LOVENOX [Suspect]
     Indication: TRANSIENT ISCHAEMIC ATTACK
     Dosage: 110 MG Q12H SQ
     Route: 058
     Dates: start: 20050429, end: 20050502

REACTIONS (2)
  - ASTHENIA [None]
  - RETROPERITONEAL HAEMORRHAGE [None]
